FAERS Safety Report 5442132-5 (Version None)
Quarter: 2007Q3

REPORT INFORMATION
  Report Type: 
  Country: None (occurrence: None)
  Receive Date: 20070904
  Receipt Date: 20070827
  Transmission Date: 20080115
  Serious: Yes (Hospitalization)
  Sender: FDA-Public Use
  Company Number: NL-JNJFOC-20051202967

PATIENT
  Sex: Female

DRUGS (12)
  1. RISPERDAL CONSTA [Suspect]
     Route: 030
     Dates: start: 20050511
  2. RISPERDAL CONSTA [Suspect]
     Indication: DRUG USE FOR UNKNOWN INDICATION
     Route: 030
     Dates: start: 20050511
  3. SEMAP [Suspect]
  4. SEMAP [Suspect]
  5. SEMAP [Suspect]
     Indication: DRUG USE FOR UNKNOWN INDICATION
  6. HALDOL [Suspect]
     Indication: DRUG USE FOR UNKNOWN INDICATION
  7. LITHIUM CARBONATE [Concomitant]
  8. PARNATE [Concomitant]
  9. OXAZEPAM [Concomitant]
  10. THYRAX DUO [Concomitant]
  11. LORMETAZEPAM [Concomitant]
  12. METAMUCIL [Concomitant]

REACTIONS (3)
  - BRONCHITIS [None]
  - HYPOTHERMIA [None]
  - THROMBOCYTOPENIA [None]
